FAERS Safety Report 18348654 (Version 1)
Quarter: 2020Q4

REPORT INFORMATION
  Report Type: Spontaneous
  Country: US (occurrence: US)
  Receive Date: 20201006
  Receipt Date: 20201006
  Transmission Date: 20210114
  Serious: Yes (Other)
  Sender: FDA-Public Use
  Company Number: US-GLAXOSMITHKLINE-US2020AMR197068

PATIENT
  Age: 71 Year
  Sex: Female
  Weight: 88.44 kg

DRUGS (7)
  1. SIMPONI [Concomitant]
     Active Substance: GOLIMUMAB
     Indication: PRODUCT USED FOR UNKNOWN INDICATION
     Dosage: UNK
  2. RASUVO [Suspect]
     Active Substance: METHOTREXATE SODIUM
     Dosage: 7.5 MG, QD
     Dates: start: 2020
  3. HYDROCHLOROTHIAZIDE. [Suspect]
     Active Substance: HYDROCHLOROTHIAZIDE
     Indication: HYPERTENSION
     Dosage: 12.5 MG, CYC
     Dates: end: 2020
  4. RASUVO [Suspect]
     Active Substance: METHOTREXATE SODIUM
     Dosage: 22.5 MG, WE
     Dates: start: 202007, end: 202007
  5. RASUVO [Suspect]
     Active Substance: METHOTREXATE SODIUM
     Dosage: 20 MG, WE
     Dates: start: 202007
  6. RASUVO [Suspect]
     Active Substance: METHOTREXATE SODIUM
     Indication: RHEUMATOID ARTHRITIS
     Dosage: 25 MG, WE
     Dates: start: 202003, end: 202007
  7. CARVEDILOL. [Suspect]
     Active Substance: CARVEDILOL
     Indication: HYPERTENSION
     Dosage: 12.5 MG, BID
     Dates: end: 2020

REACTIONS (5)
  - Creatinine urine increased [Not Recovered/Not Resolved]
  - Renal cyst [Unknown]
  - Renal impairment [Unknown]
  - Protein urine present [Unknown]
  - Glomerular filtration rate decreased [Not Recovered/Not Resolved]

NARRATIVE: CASE EVENT DATE: 202009
